FAERS Safety Report 6666930-5 (Version None)
Quarter: 2010Q2

REPORT INFORMATION
  Report Type: 
  Country: None (occurrence: None)
  Receive Date: 20100402
  Receipt Date: 20100402
  Transmission Date: 20101027
  Serious: No
  Sender: FDA-Public Use
  Company Number: None

PATIENT
  Sex: Female
  Weight: 116 kg

DRUGS (3)
  1. CISPLATIN [Suspect]
     Dosage: 92 MG
  2. DOXORUBICIN HCL [Suspect]
     Dosage: 82 MG
  3. TAXOL [Suspect]
     Dosage: 293 MG

REACTIONS (2)
  - DRUG TOXICITY [None]
  - NEUTROPHIL COUNT DECREASED [None]
